FAERS Safety Report 8853338 (Version 1)
Quarter: 2012Q4

REPORT INFORMATION
  Report Type: 
  Country: HU (occurrence: HU)
  Receive Date: 20121023
  Receipt Date: 20121023
  Transmission Date: 20130627
  Serious: Yes (Hospitalization)
  Sender: FDA-Public Use
  Company Number: HU-009507513-1210HUN006843

PATIENT
  Age: 20 Month
  Sex: Male
  Weight: 12 kg

DRUGS (1)
  1. LORATADINE [Suspect]
     Dosage: 15 x 10 mg
     Route: 048

REACTIONS (3)
  - Accidental exposure to product by child [Unknown]
  - Accidental overdose [Unknown]
  - Blood alkaline phosphatase increased [Recovered/Resolved]
